FAERS Safety Report 6243398-4 (Version None)
Quarter: 2009Q2

REPORT INFORMATION
  Report Type: 
  Country: None (occurrence: None)
  Receive Date: 20090622
  Receipt Date: 20090609
  Transmission Date: 20091009
  Serious: Yes (Other)
  Sender: FDA-Public Use
  Company Number: 8042399

PATIENT
  Age: 69 Year
  Sex: Female

DRUGS (6)
  1. KEPPRA [Suspect]
     Indication: MYOCLONUS
     Dosage: 1000 MG 3/D PO
     Route: 048
     Dates: start: 20080601
  2. CLONAZEPAM [Concomitant]
  3. HYTACAND [Concomitant]
  4. ISOPTIN [Concomitant]
  5. INEXIUM /01479302/ [Concomitant]
  6. UNSPECIFIED ANTIDEPRESSIVE DRUG [Concomitant]

REACTIONS (3)
  - MYOCLONUS [None]
  - THERAPY CESSATION [None]
  - WEIGHT INCREASED [None]
